FAERS Safety Report 7425358-0 (Version None)
Quarter: 2011Q1

REPORT INFORMATION
  Report Type: 
  Country: None (occurrence: None)
  Receive Date: 20110302
  Receipt Date: 20101027
  Transmission Date: 20110831
  Serious: No
  Sender: FDA-Public Use
  Company Number: 017572

PATIENT
  Sex: Female

DRUGS (2)
  1. CIMZIA [Suspect]
     Indication: CROHN'S DISEASE
     Dosage: (SUBCUTANEOUS), (400MG ONCE IN EVERY 40 DAYS SUBCUTANEOUS)
     Route: 058
     Dates: start: 20100906
  2. CIMZIA [Suspect]
     Indication: CROHN'S DISEASE
     Dosage: (SUBCUTANEOUS), (400MG ONCE IN EVERY 40 DAYS SUBCUTANEOUS)
     Route: 058
     Dates: start: 20090101

REACTIONS (2)
  - ASTHMA [None]
  - ORAL CANDIDIASIS [None]
